FAERS Safety Report 8636830 (Version 2)
Quarter: 2012Q4

REPORT INFORMATION
  Report Type: 
  Country: US (occurrence: US)
  Receive Date: 20120626
  Receipt Date: 20120919
  Transmission Date: 20130627
  Serious: No
  Sender: FDA-Public Use
  Company Number: US-ASTRAZENECA-2011SE77778

PATIENT
  Age: 65 Year
  Sex: Female

DRUGS (4)
  1. NEXIUM [Suspect]
     Route: 048
  2. ASPIRIN [Suspect]
     Route: 048
  3. CODEINE [Suspect]
     Route: 065
  4. PENICILLIN [Suspect]
     Route: 065

REACTIONS (7)
  - Abdominal pain upper [Unknown]
  - Weight decreased [Unknown]
  - Migraine [Unknown]
  - Gastric disorder [Unknown]
  - Therapeutic response unexpected [Unknown]
  - Vertigo [Unknown]
  - Drug hypersensitivity [Unknown]
